FAERS Safety Report 9108170 (Version 1)
Quarter: 2013Q1

REPORT INFORMATION
  Report Type: Spontaneous
  Country: AU (occurrence: AU)
  Receive Date: 20130221
  Receipt Date: 20130221
  Transmission Date: 20140127
  Serious: Yes (Other)
  Sender: FDA-Public Use
  Company Number: AU-PFIZER INC-2013062935

PATIENT
  Age: 81 Year
  Sex: Female

DRUGS (1)
  1. NORVASC [Suspect]

REACTIONS (5)
  - Abasia [Unknown]
  - Local swelling [Unknown]
  - Fatigue [Unknown]
  - Pain [Unknown]
  - Dysuria [Unknown]
